FAERS Safety Report 10451661 (Version 3)
Quarter: 2014Q3

REPORT INFORMATION
  Report Type: Spontaneous
  Country: DE (occurrence: DE)
  Receive Date: 20140915
  Receipt Date: 20140930
  Transmission Date: 20150326
  Serious: Yes (Hospitalization)
  Sender: FDA-Public Use
  Company Number: DE-AMGEN-DEUSP2014068773

PATIENT
  Age: 66 Year
  Sex: Female
  Weight: 66 kg

DRUGS (8)
  1. MOVICOL                            /08437601/ [Concomitant]
     Dosage: 1 BAG
     Dates: start: 20140711
  2. PANTOPRAZOLE [Concomitant]
     Active Substance: PANTOPRAZOLE SODIUM
     Dosage: 40 MG, UNK
     Dates: start: 20140624
  3. KALINOR RETARD P [Concomitant]
     Dosage: 3 TABL.
     Dates: start: 20140831
  4. PACLITAXEL. [Suspect]
     Active Substance: PACLITAXEL
     Indication: BREAST CANCER
     Dosage: 617 MG, Q D15
     Route: 042
     Dates: start: 20140729
  5. NEULASTA [Suspect]
     Active Substance: PEGFILGRASTIM
     Indication: PRODUCT USED FOR UNKNOWN INDICATION
     Dosage: 6 MG, EVERY 14 DAYS (1 DAY AFTER CHEMOTHERAPY)
     Route: 058
     Dates: start: 20140617
  6. EPIRUBICIN [Suspect]
     Active Substance: EPIRUBICIN
     Indication: BREAST CANCER
     Dosage: 278 MG, Q D15
     Route: 042
     Dates: start: 20140617
  7. ASPIRIN. [Concomitant]
     Active Substance: ASPIRIN
     Dosage: 100 MG, UNK
     Dates: start: 20140829
  8. RAMIPRIL. [Concomitant]
     Active Substance: RAMIPRIL
     Dosage: 10 MG, UNK
     Dates: start: 201206

REACTIONS (3)
  - Bone pain [Recovered/Resolved]
  - Spinal pain [Recovered/Resolved]
  - Leukocytosis [Recovered/Resolved]

NARRATIVE: CASE EVENT DATE: 20140827
